FAERS Safety Report 9741412 (Version 2)
Quarter: 2013Q4

REPORT INFORMATION
  Report Type: Spontaneous
  Country: IE (occurrence: IE)
  Receive Date: 20131209
  Receipt Date: 20131209
  Transmission Date: 20140711
  Serious: Yes (Hospitalization, Other)
  Sender: FDA-Public Use
  Company Number: PHFR2013IE005748

PATIENT
  Age: 49 Year
  Sex: Female
  Weight: 58.7 kg

DRUGS (10)
  1. CLOZARIL [Suspect]
     Indication: SCHIZOPHRENIA
     Dosage: UNK
     Route: 048
     Dates: start: 20130922
  2. CLOZARIL [Suspect]
     Dosage: UNK
     Route: 048
  3. CLOZARIL [Suspect]
     Dosage: 25 MG, UNK
     Route: 048
  4. CLOZARIL [Suspect]
     Dosage: 75 MG, UNK
     Route: 048
     Dates: end: 20131018
  5. OMEPRAZOLE [Concomitant]
     Indication: GASTRIC DISORDER
     Dosage: 40 MG, UNK
     Route: 048
     Dates: start: 20130829
  6. LORAZEPAM [Concomitant]
     Indication: AGITATION
     Dosage: 7 MG, UNK
     Dates: start: 20130829, end: 20130904
  7. CHLORPROMAZINE [Concomitant]
     Dosage: 100 MG, UNK
     Route: 048
     Dates: start: 20130809, end: 20131008
  8. SODIUM VALPROATE [Concomitant]
     Indication: AFFECTIVE DISORDER
     Dosage: 700 MG, UNK
     Route: 048
     Dates: start: 20130829
  9. PRIADEL [Concomitant]
     Indication: AFFECTIVE DISORDER
     Dosage: 800 MG, UNK
     Route: 048
     Dates: start: 20130829
  10. ARIPIPRAZOLE [Concomitant]
     Indication: AFFECTIVE DISORDER
     Dosage: UNK
     Route: 048
     Dates: start: 20131120

REACTIONS (11)
  - Urinary tract infection [Recovered/Resolved]
  - Infection [Unknown]
  - White blood cell count increased [Unknown]
  - Neutrophil count increased [Unknown]
  - Pyrexia [Recovered/Resolved]
  - Electrocardiogram T wave abnormal [Recovered/Resolved]
  - Heart rate increased [Recovered/Resolved]
  - Glomerular filtration rate decreased [Unknown]
  - Blood creatinine increased [Unknown]
  - C-reactive protein increased [Unknown]
  - Haemoglobin decreased [Unknown]
